FAERS Safety Report 16291300 (Version 2)
Quarter: 2019Q2

REPORT INFORMATION
  Report Type: Spontaneous
  Country: CA (occurrence: CA)
  Receive Date: 20190509
  Receipt Date: 20190517
  Transmission Date: 20190711
  Serious: Yes (Other)
  Sender: FDA-Public Use
  Company Number: CA-PFIZER INC-2019193350

PATIENT
  Age: 66 Year
  Sex: Female

DRUGS (9)
  1. TYLENOL 8 HR ARTHRITIS PAIN [Concomitant]
     Active Substance: ACETAMINOPHEN
     Dosage: UNK
     Route: 065
  2. XELJANZ [Suspect]
     Active Substance: TOFACITINIB CITRATE
     Indication: RHEUMATOID ARTHRITIS
     Dosage: 2 DF, 2X/DAY
     Route: 048
  3. HYDRODIURIL [Suspect]
     Active Substance: HYDROCHLOROTHIAZIDE
     Dosage: 25 MG, 1X/DAY
     Route: 065
  4. APO-ATENOL [Suspect]
     Active Substance: ATENOLOL
     Dosage: UNK
     Route: 065
  5. IBUPROFEN. [Concomitant]
     Active Substance: IBUPROFEN
     Dosage: UNK
     Route: 065
  6. XELJANZ [Suspect]
     Active Substance: TOFACITINIB CITRATE
     Dosage: 5 MG, 2X/DAY
     Route: 048
  7. DIOVAN [Suspect]
     Active Substance: VALSARTAN
     Dosage: 320 MG, 1X/DAY
     Route: 065
  8. DIOVAN [Suspect]
     Active Substance: VALSARTAN
     Dosage: 160 MG, 1X/DAY
     Route: 065
  9. METRONIDAZOLE BENZOATE [Concomitant]
     Active Substance: METRONIDAZOLE BENZOATE
     Dosage: 500 MG, 2X/DAY
     Route: 065

REACTIONS (14)
  - Drug ineffective [Not Recovered/Not Resolved]
  - Gait disturbance [Not Recovered/Not Resolved]
  - Joint swelling [Not Recovered/Not Resolved]
  - Rheumatoid arthritis [Not Recovered/Not Resolved]
  - Arthralgia [Not Recovered/Not Resolved]
  - Condition aggravated [Not Recovered/Not Resolved]
  - Tachycardia [Not Recovered/Not Resolved]
  - Nausea [Not Recovered/Not Resolved]
  - Abdominal pain [Not Recovered/Not Resolved]
  - Diverticulitis [Not Recovered/Not Resolved]
  - Inflammation [Not Recovered/Not Resolved]
  - Arthritis [Not Recovered/Not Resolved]
  - C-reactive protein increased [Not Recovered/Not Resolved]
  - Red blood cell sedimentation rate increased [Not Recovered/Not Resolved]
